FAERS Safety Report 7396267-0 (Version None)
Quarter: 2011Q2

REPORT INFORMATION
  Report Type: 
  Country: None (occurrence: None)
  Receive Date: 20110406
  Receipt Date: 20110329
  Transmission Date: 20111010
  Serious: Yes (Hospitalization)
  Sender: FDA-Public Use
  Company Number: CH-SANOFI-AVENTIS-2011SA019115

PATIENT
  Age: 54 Year
  Sex: Female

DRUGS (12)
  1. PRAVASTATIN [Suspect]
     Route: 048
     Dates: start: 20110221, end: 20110228
  2. BUPRENORPHINE HYDROCHLORIDE [Suspect]
     Route: 048
     Dates: start: 20110222, end: 20110301
  3. CALCIUM [Concomitant]
     Route: 048
  4. CONCOR [Concomitant]
     Route: 048
  5. NEPHROTRANS [Concomitant]
     Route: 048
  6. RECORMON [Concomitant]
     Route: 058
  7. CLEXANE [Suspect]
     Route: 058
     Dates: start: 20110221
  8. CIPROFLOXACIN [Suspect]
     Dosage: 1 PER 2 DAYS
     Route: 048
     Dates: start: 20110224, end: 20110302
  9. NIMOTOP [Suspect]
     Dosage: 12 PER 1 DAY
     Route: 048
     Dates: start: 20110219, end: 20110304
  10. LACTULOSE [Concomitant]
     Route: 048
     Dates: start: 20110219
  11. DAFALGAN [Suspect]
     Route: 048
     Dates: start: 20110219, end: 20110226
  12. PANTOPRAZOLE SODIUM [Suspect]
     Route: 048
     Dates: start: 20110219, end: 20110306

REACTIONS (3)
  - CHOLESTATIC LIVER INJURY [None]
  - LIVER DISORDER [None]
  - TRANSAMINASES INCREASED [None]
